FAERS Safety Report 25908273 (Version 1)
Quarter: 2025Q4

REPORT INFORMATION
  Report Type: Spontaneous
  Country: US (occurrence: US)
  Receive Date: 20251010
  Receipt Date: 20251010
  Transmission Date: 20260117
  Serious: No
  Sender: SPROUT PHARMACEUTICALS
  Company Number: US-Sprout Pharmaceuticals, Inc.-2024SP000341

PATIENT

DRUGS (4)
  1. ADDYI [Suspect]
     Active Substance: FLIBANSERIN
     Indication: Product used for unknown indication
     Dosage: RX# 9331774, 100 MILLIGRAM
     Route: 048
     Dates: start: 202407
  2. ADVAIR HFA [Concomitant]
     Active Substance: FLUTICASONE PROPIONATE\SALMETEROL XINAFOATE
     Indication: Product used for unknown indication
     Dosage: 100/50, AS NEEDED, PRN
  3. FAMOTIDINE [Concomitant]
     Active Substance: FAMOTIDINE
     Indication: Product used for unknown indication
     Dosage: 20 MG, AS NEEDED, PRN
  4. VITAMIN D [Concomitant]
     Active Substance: VITAMIN D NOS
     Indication: Product used for unknown indication
     Dosage: 1000 MG, DAILY, QD

REACTIONS (5)
  - Agitation [Unknown]
  - Disturbance in attention [Unknown]
  - Mood altered [Unknown]
  - Adverse drug reaction [Unknown]
  - Insomnia [Unknown]

NARRATIVE: CASE EVENT DATE: 20240701
